FAERS Safety Report 16903965 (Version 1)
Quarter: 2019Q4

REPORT INFORMATION
  Report Type: Spontaneous
  Country: DE (occurrence: DE)
  Receive Date: 20191010
  Receipt Date: 20191010
  Transmission Date: 20200122
  Serious: Yes (Life-Threatening, Hospitalization, Other)
  Sender: FDA-Public Use
  Company Number: DE-MYLANLABS-PHNU2004DE03025

PATIENT
  Age: 30 Year
  Sex: Female

DRUGS (1)
  1. PRAVIDEL (BROMOCRIPTINE MESYLATE) [Suspect]
     Active Substance: BROMOCRIPTINE MESYLATE
     Indication: GALACTORRHOEA
     Dosage: UNK, UNK
     Dates: start: 200408

REACTIONS (6)
  - Genitourinary tract infection [Unknown]
  - Exposure during pregnancy [Unknown]
  - Myocardial infarction [Unknown]
  - Thrombotic thrombocytopenic purpura [Recovering/Resolving]
  - Neurological symptom [Unknown]
  - Platelet count decreased [Recovering/Resolving]

NARRATIVE: CASE EVENT DATE: 200408
